FAERS Safety Report 20494718 (Version 2)
Quarter: 2022Q2

REPORT INFORMATION
  Report Type: Spontaneous
  Country: US (occurrence: US)
  Receive Date: 20220221
  Receipt Date: 20220627
  Transmission Date: 20220720
  Serious: No
  Sender: FDA-Public Use
  Company Number: US-BAYER-2022A023713

PATIENT

DRUGS (4)
  1. CLARITIN [Suspect]
     Active Substance: LORATADINE
     Indication: Pruritus
     Dosage: 2 DF
  2. CLARITIN [Suspect]
     Active Substance: LORATADINE
     Indication: Oropharyngeal pain
  3. CLARITIN [Suspect]
     Active Substance: LORATADINE
     Indication: Ear pain
  4. CLARITIN [Suspect]
     Active Substance: LORATADINE
     Indication: Hypersensitivity

REACTIONS (3)
  - Pruritus [Recovering/Resolving]
  - Extra dose administered [None]
  - Drug effective for unapproved indication [None]
